FAERS Safety Report 8358801-3 (Version None)
Quarter: 2012Q2

REPORT INFORMATION
  Report Type: 
  Country: None (occurrence: None)
  Receive Date: 20120514
  Receipt Date: 20120423
  Transmission Date: 20120825
  Serious: Yes (Death)
  Sender: FDA-Public Use
  Company Number: PHHY2010KR42505

PATIENT
  Sex: Female
  Weight: 48 kg

DRUGS (1)
  1. EXJADE [Suspect]
     Indication: IRON OVERLOAD
     Dosage: 875 MG, UNK
     Route: 048
     Dates: start: 20100203, end: 20100322

REACTIONS (1)
  - DEATH [None]
